FAERS Safety Report 19823696 (Version 2)
Quarter: 2021Q4

REPORT INFORMATION
  Report Type: Spontaneous
  Country: IR (occurrence: IR)
  Receive Date: 20210913
  Receipt Date: 20211018
  Transmission Date: 20220303
  Serious: Yes (Life-Threatening, Hospitalization, Other)
  Sender: FDA-Public Use
  Company Number: IR-MYLANLABS-2021M1060805

PATIENT
  Age: 82 Year
  Sex: Male
  Weight: 80 kg

DRUGS (3)
  1. METHOTREXATE [Suspect]
     Active Substance: METHOTREXATE
     Indication: Scleroderma
     Dosage: UNK
     Route: 048
  2. METHOTREXATE SODIUM [Suspect]
     Active Substance: METHOTREXATE SODIUM
     Indication: Skin lesion
     Dosage: 15 MILLIGRAM, QD (MISTAKENLY TOOK 6 TABLETS EVERYDAY)
     Route: 048
  3. METHOTREXATE SODIUM [Suspect]
     Active Substance: METHOTREXATE SODIUM
     Dosage: 7.5 MILLIGRAM, QW (FIRST WEEK, THREE TABLETS, AND THEN WEEKLY SIX TABLETS)
     Route: 048

REACTIONS (4)
  - Toxicity to various agents [Unknown]
  - Pancytopenia [Recovered/Resolved]
  - Product administration error [Unknown]
  - Overdose [Unknown]
